FAERS Safety Report 15663800 (Version 1)
Quarter: 2018Q4

REPORT INFORMATION
  Report Type: Spontaneous
  Country: US (occurrence: US)
  Receive Date: 20181128
  Receipt Date: 20181128
  Transmission Date: 20190205
  Serious: No
  Sender: FDA-Public Use
  Company Number: US-TEVA-2018-US-979714

PATIENT
  Sex: Male

DRUGS (1)
  1. TEMAZEPAM CAPSULE [Suspect]
     Active Substance: TEMAZEPAM
     Indication: INSOMNIA
     Dates: start: 2017

REACTIONS (4)
  - Drug effect decreased [Unknown]
  - Product physical consistency issue [Unknown]
  - Wrong technique in product usage process [Unknown]
  - Product substitution issue [Unknown]

NARRATIVE: CASE EVENT DATE: 2017
